FAERS Safety Report 6009561-2 (Version None)
Quarter: 2008Q4

REPORT INFORMATION
  Report Type: 
  Country: None (occurrence: None)
  Receive Date: 20081217
  Receipt Date: 20081009
  Transmission Date: 20090506
  Serious: No
  Sender: FDA-Public Use
  Company Number: US-BAYER-200836123NA

PATIENT
  Age: 48 Year
  Sex: Female

DRUGS (1)
  1. YAZ [Suspect]
     Indication: MENSTRUATION IRREGULAR
     Route: 048
     Dates: start: 20080729

REACTIONS (5)
  - ABDOMINAL PAIN [None]
  - METRORRHAGIA [None]
  - NO ADVERSE EVENT [None]
  - VAGINAL DISCHARGE [None]
  - VULVOVAGINAL MYCOTIC INFECTION [None]
